FAERS Safety Report 21346146 (Version 4)
Quarter: 2022Q4

REPORT INFORMATION
  Report Type: Spontaneous
  Country: CA (occurrence: CA)
  Receive Date: 20220917
  Receipt Date: 20221104
  Transmission Date: 20230113
  Serious: Yes (Other)
  Sender: FDA-Public Use
  Company Number: CA-CELLTRION INC.-2022CA014848

PATIENT

DRUGS (6)
  1. INFLECTRA [Suspect]
     Active Substance: INFLIXIMAB-DYYB
     Indication: Colitis ulcerative
     Dosage: 1 DF WEEK 0 AND WEEK 2 AT HOSPITAL
     Route: 042
     Dates: start: 20220807, end: 20220821
  2. INFLECTRA [Suspect]
     Active Substance: INFLIXIMAB-DYYB
     Dosage: 1 DF WEEK 0 AND WEEK 2 AT HOSPITAL
     Route: 042
     Dates: start: 20220821
  3. INFLECTRA [Suspect]
     Active Substance: INFLIXIMAB-DYYB
     Dosage: 1 DF ,DISCONTINUED
     Route: 042
     Dates: start: 20220808, end: 20220829
  4. INFLECTRA [Suspect]
     Active Substance: INFLIXIMAB-DYYB
     Dosage: 10 MG/KG ON WEEK 6 AROUND 18SEP2022, THEN 5 MG/KG-NOT YET STARTED
     Route: 042
  5. MESALAMINE [Concomitant]
     Active Substance: MESALAMINE
     Dosage: 2.4 G, DAILY (QDAY)
     Route: 048
  6. SODIUM [Concomitant]
     Active Substance: SODIUM
     Indication: Blood sodium decreased
     Dosage: UNK (SUPPLEMENT)

REACTIONS (7)
  - Haematochezia [Recovering/Resolving]
  - Urinary tract infection [Not Recovered/Not Resolved]
  - Therapeutic product effect incomplete [Unknown]
  - Condition aggravated [Recovering/Resolving]
  - Mouth ulceration [Not Recovered/Not Resolved]
  - Malaise [Not Recovered/Not Resolved]
  - Weight decreased [Not Recovered/Not Resolved]

NARRATIVE: CASE EVENT DATE: 20220101
